FAERS Safety Report 20181192 (Version 1)
Quarter: 2021Q4

REPORT INFORMATION
  Report Type: Spontaneous
  Country: US (occurrence: US)
  Receive Date: 20211214
  Receipt Date: 20211214
  Transmission Date: 20220303
  Serious: No
  Sender: FDA-Public Use
  Company Number: US-MICRO LABS LIMITED-ML2021-01564

PATIENT
  Sex: Female
  Weight: 54.43 kg

DRUGS (3)
  1. CROMOLYN SODIUM [Suspect]
     Active Substance: CROMOLYN SODIUM
     Indication: Mast cell activation syndrome
     Dosage: STRENGTH: 100 MG/5 ML
     Dates: start: 202104
  2. covid vaccine [Concomitant]
     Dosage: FIRST DOSE
     Dates: start: 202103
  3. covid vaccine [Concomitant]
     Dosage: SECOND DOSE
     Dates: start: 202104

REACTIONS (5)
  - Swelling face [Unknown]
  - Peripheral swelling [Unknown]
  - Abdominal distension [Unknown]
  - Abdominal pain upper [Unknown]
  - Incorrect dose administered [Unknown]
